FAERS Safety Report 25241576 (Version 1)
Quarter: 2025Q2

REPORT INFORMATION
  Report Type: Other
  Country: PR (occurrence: PR)
  Receive Date: 20250426
  Receipt Date: 20250426
  Transmission Date: 20250717
  Serious: Yes (Life-Threatening, Hospitalization, Other)
  Sender: SPECTRA MEDICAL DEVICES, LLC
  Company Number: PR-Spectra Medical Devices, LLC-2175641

PATIENT
  Age: 62 Year
  Sex: Male

DRUGS (1)
  1. LIDOCAINE HYDROCHLORIDE [Suspect]
     Active Substance: LIDOCAINE HYDROCHLORIDE
     Indication: Local anaesthesia

REACTIONS (3)
  - Local anaesthetic systemic toxicity [Recovered/Resolved]
  - Shock [Recovered/Resolved]
  - Status epilepticus [Recovered/Resolved]
